FAERS Safety Report 17069806 (Version 1)
Quarter: 2019Q4

REPORT INFORMATION
  Report Type: Spontaneous
  Country: FR (occurrence: FR)
  Receive Date: 20191125
  Receipt Date: 20191125
  Transmission Date: 20200122
  Serious: Yes (Life-Threatening, Hospitalization)
  Sender: FDA-Public Use
  Company Number: FR-TEVA-2019-FR-1140704

PATIENT
  Age: 17 Year
  Sex: Male

DRUGS (3)
  1. BACLOFENE [Suspect]
     Active Substance: BACLOFEN
     Dosage: 8 DOSAGE FORMS PER DAY
     Route: 048
  2. CLONAZEPAM. [Suspect]
     Active Substance: CLONAZEPAM
     Dosage: 4 DOSAGE FORMS PER DAY
     Route: 048
  3. PREGABALINE [Suspect]
     Active Substance: PREGABALIN
     Route: 048

REACTIONS (4)
  - Confusional state [Recovered/Resolved]
  - Coma [Recovered/Resolved]
  - Miosis [Recovered/Resolved]
  - Intentional overdose [Recovered/Resolved]
